FAERS Safety Report 12702108 (Version 1)
Quarter: 2016Q3

REPORT INFORMATION
  Report Type: Spontaneous
  Country: FR (occurrence: FR)
  Receive Date: 20160831
  Receipt Date: 20160831
  Transmission Date: 20161109
  Serious: Yes (Hospitalization)
  Sender: FDA-Public Use
  Company Number: FR-009507513-1608FRA013107

PATIENT
  Age: 59 Year
  Sex: Male

DRUGS (7)
  1. AVODART [Concomitant]
     Active Substance: DUTASTERIDE
     Dosage: UNK
  2. BACTRIM [Suspect]
     Active Substance: SULFAMETHOXAZOLE\TRIMETHOPRIM
     Indication: INFECTION PROPHYLAXIS
     Dosage: UNK
     Route: 048
     Dates: start: 201607, end: 20160726
  3. MEROPENEM. [Suspect]
     Active Substance: MEROPENEM
     Indication: PYREXIA
     Dosage: UNK
     Route: 042
     Dates: start: 20160718, end: 20160802
  4. NOXAFIL [Concomitant]
     Active Substance: POSACONAZOLE
     Dosage: UNK
     Route: 048
  5. ZARZIO [Concomitant]
     Active Substance: FILGRASTIM
     Dosage: UNK
  6. FIDAXOMICIN [Suspect]
     Active Substance: FIDAXOMICIN
     Indication: CLOSTRIDIUM DIFFICILE COLITIS
     Dosage: UNK
     Route: 042
     Dates: start: 20160716, end: 20160726
  7. INEXIUM (ESOMEPRAZOLE MAGNESIUM) [Suspect]
     Active Substance: ESOMEPRAZOLE MAGNESIUM
     Dosage: UNK
     Route: 048
     Dates: start: 2016, end: 20160728

REACTIONS (2)
  - Bone marrow failure [Recovering/Resolving]
  - Condition aggravated [Recovering/Resolving]

NARRATIVE: CASE EVENT DATE: 201607
